FAERS Safety Report 12384578 (Version 1)
Quarter: 2016Q2

REPORT INFORMATION
  Report Type: Spontaneous
  Country: US (occurrence: US)
  Receive Date: 20160519
  Receipt Date: 20160519
  Transmission Date: 20160815
  Serious: Yes (Other)
  Sender: FDA-Public Use
  Company Number: PHHY2016US062246

PATIENT
  Sex: Female

DRUGS (1)
  1. GILENYA [Suspect]
     Active Substance: FINGOLIMOD HYDROCHLORIDE
     Indication: RELAPSING-REMITTING MULTIPLE SCLEROSIS
     Route: 048

REACTIONS (6)
  - Pain in extremity [Recovering/Resolving]
  - Lhermitte^s sign [Recovering/Resolving]
  - Muscle spasms [Recovering/Resolving]
  - Rebound effect [Recovering/Resolving]
  - Vision blurred [Recovering/Resolving]
  - Multiple sclerosis relapse [Recovering/Resolving]
